FAERS Safety Report 9854090 (Version 2)
Quarter: 2014Q1

REPORT INFORMATION
  Report Type: Report from Study
  Country: NL (occurrence: NL)
  Receive Date: 20140129
  Receipt Date: 20140129
  Transmission Date: 20141002
  Serious: Yes (Hospitalization)
  Sender: FDA-Public Use
  Company Number: NL-ABBVIE-11P-114-0717369-00

PATIENT
  Age: 86 Year
  Sex: Female
  Weight: 58 kg

DRUGS (9)
  1. HUMIRA [Suspect]
     Indication: RHEUMATOID ARTHRITIS
     Route: 058
     Dates: start: 20080103, end: 20110401
  2. HUMIRA [Suspect]
     Route: 058
  3. CALCIUM CARBONATE W/COLECALCIFEROL [Concomitant]
     Indication: OSTEOPOROSIS
     Dosage: 1.25G/400 IU; 1 UNIT DAILY
     Route: 048
  4. FOLIC ACID [Concomitant]
     Indication: VITAMIN SUPPLEMENTATION
     Route: 048
  5. METHOTREXATE [Concomitant]
     Indication: RHEUMATOID ARTHRITIS
     Dosage: 2 UNITS ONCE WEEKLY
     Route: 048
  6. PANTOPRAZOL [Concomitant]
     Indication: GASTRIC DISORDER
     Dosage: 1 UNIT DAILY
     Route: 048
  7. PANTOPRAZOL [Concomitant]
     Indication: PROPHYLAXIS
  8. RISEDRONIC ACID [Concomitant]
     Indication: OSTEOPOROSIS
     Dosage: COATED, 1 UNIT ONCE WEEKLY
     Route: 048
  9. SUCRALFAAT [Concomitant]
     Indication: PRODUCT USED FOR UNKNOWN INDICATION
     Route: 048

REACTIONS (6)
  - Malaise [Not Recovered/Not Resolved]
  - Infection [Not Recovered/Not Resolved]
  - Urinary tract infection [Recovered/Resolved]
  - Lung infection [Recovered/Resolved]
  - Pneumonia [Recovered/Resolved]
  - Cystitis noninfective [Recovered/Resolved]
